FAERS Safety Report 4377312-3 (Version None)
Quarter: 2004Q2

REPORT INFORMATION
  Report Type: 
  Country: None (occurrence: None)
  Receive Date: 20040609
  Receipt Date: 20040421
  Transmission Date: 20050107
  Serious: No
  Sender: FDA-Public Use
  Company Number: 2004210237US

PATIENT
  Age: 51 Year
  Sex: Female

DRUGS (1)
  1. BEXTRA [Suspect]
     Indication: ARTHRALGIA
     Dosage: 20 MG
     Dates: start: 20040408, end: 20040417

REACTIONS (6)
  - DIARRHOEA [None]
  - EYELID DISORDER [None]
  - MALAISE [None]
  - PHARYNGITIS [None]
  - RASH [None]
  - URTICARIA [None]
